FAERS Safety Report 20760958 (Version 2)
Quarter: 2022Q2

REPORT INFORMATION
  Report Type: Spontaneous
  Country: IN (occurrence: IN)
  Receive Date: 20220428
  Receipt Date: 20220615
  Transmission Date: 20220720
  Serious: Yes (Other)
  Sender: FDA-Public Use
  Company Number: IN-PFIZER INC-2018357229

PATIENT
  Age: 72 Year
  Sex: Female

DRUGS (2)
  1. CRIZOTINIB [Suspect]
     Active Substance: CRIZOTINIB
     Indication: Non-small cell lung cancer metastatic
     Dosage: 250 MG, 2X/DAY
     Route: 048
     Dates: start: 20180830
  2. CRIZOTINIB [Suspect]
     Active Substance: CRIZOTINIB
     Dosage: 250 MG, 2X/DAY
     Route: 048
     Dates: start: 20180831

REACTIONS (11)
  - Second primary malignancy [Unknown]
  - Meningioma [Unknown]
  - Pleural effusion [Unknown]
  - Malaise [Unknown]
  - Blood pressure increased [Unknown]
  - Neoplasm progression [Unknown]
  - Infection [Unknown]
  - Feeling jittery [Unknown]
  - Breast disorder [Unknown]
  - Weight decreased [Unknown]
  - Oedema peripheral [Unknown]
